FAERS Safety Report 19013887 (Version 1)
Quarter: 2021Q1

REPORT INFORMATION
  Report Type: Spontaneous
  Country: KW (occurrence: KW)
  Receive Date: 20210316
  Receipt Date: 20210316
  Transmission Date: 20210420
  Serious: Yes (Other)
  Sender: FDA-Public Use
  Company Number: KW-ROCHE-2783019

PATIENT
  Age: 33 Year
  Sex: Female

DRUGS (1)
  1. OCREVUS [Suspect]
     Active Substance: OCRELIZUMAB
     Indication: RELAPSING-REMITTING MULTIPLE SCLEROSIS
     Dosage: FINISHED 4 COURSES. LAST INFUSION IN AUG?2020
     Route: 065
     Dates: start: 201907

REACTIONS (3)
  - Neuroendocrine tumour [Unknown]
  - Appendicitis [Unknown]
  - Mass [Unknown]

NARRATIVE: CASE EVENT DATE: 202101
